FAERS Safety Report 4910142-X (Version None)
Quarter: 2006Q1

REPORT INFORMATION
  Report Type: 
  Country: None (occurrence: None)
  Receive Date: 20060209
  Receipt Date: 20060123
  Transmission Date: 20060701
  Serious: Yes (Other)
  Sender: FDA-Public Use
  Company Number: US200601003949

PATIENT
  Age: 50 Year
  Sex: Male

DRUGS (4)
  1. HUMULIN R [Suspect]
     Indication: DIABETES MELLITUS INSULIN-DEPENDENT
  2. HUMULIN N [Suspect]
     Indication: DIABETES MELLITUS INSULIN-DEPENDENT
  3. ILETIN PORK NPH (INSULIN, ANIMAL PORK NPH) VIAL [Concomitant]
  4. ILETIN PORK REGULAR (INSULIN, ANIMAL PORK REGULAR) VIAL [Concomitant]

REACTIONS (1)
  - CONVULSION [None]
